FAERS Safety Report 8020115-9 (Version None)
Quarter: 2012Q1

REPORT INFORMATION
  Report Type: 
  Country: None (occurrence: None)
  Receive Date: 20120103
  Receipt Date: 20111219
  Transmission Date: 20120608
  Serious: Yes (Life-Threatening, Hospitalization, Other)
  Sender: FDA-Public Use
  Company Number: FR-PFIZER INC-2011314078

PATIENT
  Age: 82 Year
  Sex: Female

DRUGS (10)
  1. KERLONE [Concomitant]
     Dosage: UNK
  2. ESCITALOPRAM OXALATE [Concomitant]
     Dosage: UNK
  3. LASIX [Interacting]
     Indication: HYPERTENSION
     Dosage: UNKNOWN
  4. ACTONEL [Concomitant]
     Dosage: UNK
  5. DIAMICRON [Concomitant]
     Dosage: UNK
  6. CALCIUM CARBONATE/COLECALCIFEROL [Concomitant]
     Dosage: UNK
  7. IMOVANE [Concomitant]
     Dosage: UNK
  8. PANTOPRAZOLE [Concomitant]
     Dosage: UNK
  9. ACETAMINOPHEN AND TRAMADOL HCL [Interacting]
     Dosage: 2 DF, DAILY
     Route: 048
  10. RAMIPRIL [Suspect]
     Indication: HYPERTENSION
     Dosage: UNKNOWN

REACTIONS (7)
  - OVERDOSE [None]
  - HYPERCAPNIA [None]
  - RENAL FAILURE [None]
  - COMA [None]
  - DRUG INTERACTION [None]
  - HEPATIC FAILURE [None]
  - RIGHT VENTRICULAR FAILURE [None]
